FAERS Safety Report 7280665-X (Version None)
Quarter: 2011Q1

REPORT INFORMATION
  Report Type: 
  Country: None (occurrence: None)
  Receive Date: 20110208
  Receipt Date: 20110201
  Transmission Date: 20110831
  Serious: Yes (Hospitalization)
  Sender: FDA-Public Use
  Company Number: A0875835A

PATIENT
  Age: 51 Year
  Sex: Male

DRUGS (2)
  1. AVANDAMET [Suspect]
     Indication: DIABETES MELLITUS
     Route: 048
     Dates: start: 20030505, end: 20081221
  2. AVANDIA [Suspect]
     Indication: DIABETES MELLITUS
     Route: 048
     Dates: start: 20020318, end: 20070716

REACTIONS (6)
  - PAIN [None]
  - OEDEMA [None]
  - CHEST PAIN [None]
  - DYSPNOEA [None]
  - CARDIOMEGALY [None]
  - ARTERIOSCLEROSIS CORONARY ARTERY [None]
